FAERS Safety Report 6969565-X (Version None)
Quarter: 2010Q3

REPORT INFORMATION
  Report Type: 
  Country: None (occurrence: None)
  Receive Date: 20100907
  Receipt Date: 20100907
  Transmission Date: 20110219
  Serious: Yes (Disabling, Congenital Anomaly)
  Sender: FDA-Public Use
  Company Number: None

PATIENT
  Age: 45 Year
  Sex: Female
  Weight: 100.6985 kg

DRUGS (2)
  1. RISPERDONE [Suspect]
     Indication: SCHIZOPHRENIA
     Dosage: 25MG-EVERY TWO WEEKS-/3MG DAIL 2XMTH/DAILY IM
     Route: 030
     Dates: start: 20100815, end: 20100906
  2. GEMFIBROZIL [Suspect]
     Indication: BLOOD CHOLESTEROL INCREASED
     Dosage: 1200MG DAILY PO
     Route: 048
     Dates: start: 20100815, end: 20100906

REACTIONS (2)
  - ABORTION SPONTANEOUS [None]
  - INFERTILITY [None]
